FAERS Safety Report 5176631-0 (Version None)
Quarter: 2006Q4

REPORT INFORMATION
  Report Type: 
  Country: None (occurrence: None)
  Receive Date: 20061215
  Receipt Date: 20061207
  Transmission Date: 20070319
  Serious: Yes (Hospitalization, Other)
  Sender: FDA-Public Use
  Company Number: KR-ABBOTT-06P-090-0352762-00

PATIENT
  Age: 23 Year
  Sex: Female

DRUGS (1)
  1. VALPROIC ACID [Suspect]
     Indication: DRUG USE FOR UNKNOWN INDICATION

REACTIONS (6)
  - COMA [None]
  - DIALYSIS [None]
  - HYPERAMMONAEMIA [None]
  - METABOLIC ACIDOSIS [None]
  - OVERDOSE [None]
  - SUICIDE ATTEMPT [None]
